FAERS Safety Report 13862357 (Version 2)
Quarter: 2018Q1

REPORT INFORMATION
  Report Type: Report from Study
  Country: AU (occurrence: AU)
  Receive Date: 20170813
  Receipt Date: 20180228
  Transmission Date: 20180508
  Serious: Yes (Other)
  Sender: FDA-Public Use
  Company Number: PHHY2017AU113806

PATIENT
  Sex: Female

DRUGS (3)
  1. GLIVEC [Suspect]
     Active Substance: IMATINIB MESYLATE
     Indication: PHILADELPHIA CHROMOSOME POSITIVE
     Dosage: 400 MG, QD
     Route: 048
     Dates: start: 20170902
  2. DASATINIB. [Suspect]
     Active Substance: DASATINIB
     Indication: PRODUCT USED FOR UNKNOWN INDICATION
     Route: 065
  3. GLIVEC [Suspect]
     Active Substance: IMATINIB MESYLATE
     Indication: ACUTE LYMPHOCYTIC LEUKAEMIA

REACTIONS (10)
  - Sepsis [Unknown]
  - Hepatitis [Unknown]
  - Dyspnoea [Unknown]
  - Intracranial pressure increased [Unknown]
  - Bone marrow failure [Unknown]
  - Shunt infection [Unknown]
  - Cytopenia [Unknown]
  - Pulmonary hypertension [Unknown]
  - Gait disturbance [Unknown]
  - Visual impairment [Unknown]
